FAERS Safety Report 7563140-4 (Version None)
Quarter: 2011Q2

REPORT INFORMATION
  Report Type: 
  Country: None (occurrence: None)
  Receive Date: 20110615
  Receipt Date: 20110609
  Transmission Date: 20111010
  Serious: Yes (Hospitalization, Other)
  Sender: FDA-Public Use
  Company Number: ACO_24762_2010

PATIENT
  Age: 54 Year
  Sex: Female
  Weight: 86 kg

DRUGS (9)
  1. AMANTADINE HCL [Concomitant]
  2. VENLAFAXINE [Concomitant]
  3. AMPYRA [Suspect]
     Indication: MULTIPLE SCLEROSIS
     Dosage: 10 MG, BID, ORAL
     Route: 048
     Dates: start: 20100701, end: 20100810
  4. BACLOFEN [Concomitant]
  5. TIZANIDINE HCL [Concomitant]
  6. AVONEX [Concomitant]
  7. AMITRIPTYLINE HCL [Concomitant]
  8. VITAMIN D [Concomitant]
  9. EFFEXOR [Concomitant]

REACTIONS (9)
  - CONVULSIVE THRESHOLD LOWERED [None]
  - HYPONATRAEMIA [None]
  - BLOOD CHLORIDE DECREASED [None]
  - WHITE BLOOD CELL COUNT DECREASED [None]
  - CONTUSION [None]
  - HAEMATOCRIT DECREASED [None]
  - BACK PAIN [None]
  - CONVULSION [None]
  - BLOOD MAGNESIUM DECREASED [None]
